FAERS Safety Report 4932749-6 (Version None)
Quarter: 2006Q1

REPORT INFORMATION
  Report Type: 
  Country: None (occurrence: None)
  Receive Date: 20060302
  Receipt Date: 20060302
  Transmission Date: 20060701
  Serious: Yes (Other)
  Sender: FDA-Public Use
  Company Number: None

PATIENT
  Sex: Female
  Weight: 68.0396 kg

DRUGS (5)
  1. DEXMEDETOMIDINE (PRECEDEX) - ABBOTT [Suspect]
     Indication: SEDATION
     Dosage: 0.2 MCG/KG/HR IV INFUSI
     Route: 042
     Dates: start: 20060103
  2. COMBIVENT [Concomitant]
  3. PANTOPRAZOLE [Concomitant]
  4. METHYLPREDNISOLONE [Concomitant]
  5. FLECAINIDE ACETATE [Concomitant]

REACTIONS (8)
  - CRYPTOGENIC ORGANIZING PNEUMONIA [None]
  - ERYTHEMA [None]
  - GENERAL PHYSICAL HEALTH DETERIORATION [None]
  - HYPOTENSION [None]
  - HYPOXIA [None]
  - RED MAN SYNDROME [None]
  - RESPIRATORY FAILURE [None]
  - TACHYPNOEA [None]
